FAERS Safety Report 13666006 (Version 2)
Quarter: 2017Q3

REPORT INFORMATION
  Report Type: Report from Study
  Country: US (occurrence: US)
  Receive Date: 20170619
  Receipt Date: 20170718
  Transmission Date: 20171127
  Serious: Yes (Death, Hospitalization, Disabling, Other)
  Sender: FDA-Public Use
  Company Number: US-ACTELION-A-NJ2015-123257

PATIENT
  Age: 12 Year
  Sex: Female
  Weight: 45.35 kg

DRUGS (9)
  1. SILDENAFIL. [Concomitant]
     Active Substance: SILDENAFIL
     Dosage: 40 MG, TID
     Route: 048
     Dates: start: 201408
  2. TRACLEER [Suspect]
     Active Substance: BOSENTAN
     Indication: PULMONARY ARTERIAL HYPERTENSION
     Dosage: 125 MG, Q12HRS
     Route: 048
     Dates: start: 201408
  3. LASIX [Concomitant]
     Active Substance: FUROSEMIDE
     Dosage: 10 MG, Q12HRS
     Route: 048
     Dates: start: 201508
  4. ASPIRIN. [Concomitant]
     Active Substance: ASPIRIN
     Dosage: 81 MG, QD
     Route: 048
     Dates: start: 2016
  5. TRACLEER [Suspect]
     Active Substance: BOSENTAN
     Dosage: 62.5 MG, BID
     Route: 048
     Dates: start: 20140529, end: 20150128
  6. SILDENAFIL. [Concomitant]
     Active Substance: SILDENAFIL
     Dosage: 20 MG, TID
     Dates: start: 201505
  7. OXYGEN. [Concomitant]
     Active Substance: OXYGEN
  8. DIGOXIN. [Concomitant]
     Active Substance: DIGOXIN
     Dosage: 125 MCG, Q12HRS
     Route: 048
     Dates: start: 201508
  9. ALDACTONE [Concomitant]
     Active Substance: SPIRONOLACTONE
     Dosage: 50 MG, Q12HRS
     Route: 048
     Dates: start: 201508

REACTIONS (15)
  - Pulmonary arterial hypertension [Fatal]
  - Cyanosis [Fatal]
  - Respiratory failure [Recovering/Resolving]
  - Endotracheal intubation [Recovering/Resolving]
  - Abdominal pain [Unknown]
  - Bradycardia [Unknown]
  - Condition aggravated [Not Recovered/Not Resolved]
  - Oxygen therapy [Fatal]
  - Oxygen saturation decreased [Fatal]
  - Cardiac arrest [Fatal]
  - Pneumonia mycoplasmal [Recovering/Resolving]
  - Acute respiratory distress syndrome [Recovering/Resolving]
  - Pericardial effusion [Recovering/Resolving]
  - Sleep apnoea syndrome [Recovering/Resolving]
  - Cardiac failure [Not Recovered/Not Resolved]

NARRATIVE: CASE EVENT DATE: 20170601
